FAERS Safety Report 4827720-9 (Version None)
Quarter: 2005Q4

REPORT INFORMATION
  Report Type: 
  Country: None (occurrence: None)
  Receive Date: 20051114
  Receipt Date: 20041231
  Transmission Date: 20060501
  Serious: Yes (Hospitalization, Disabling)
  Sender: FDA-Public Use
  Company Number: US-MERCK-0501USA00150

PATIENT
  Age: 50 Year
  Sex: Female
  Weight: 102 kg

DRUGS (6)
  1. VIOXX [Suspect]
     Indication: OSTEOARTHRITIS
     Route: 048
     Dates: start: 20000807, end: 20040930
  2. VIOXX [Suspect]
     Indication: INTERVERTEBRAL DISC DEGENERATION
     Route: 048
     Dates: start: 20000807, end: 20040930
  3. PERCOCET [Concomitant]
     Route: 065
  4. PREVACID [Concomitant]
     Indication: GASTROOESOPHAGEAL REFLUX DISEASE
     Route: 065
  5. DITROPAN [Concomitant]
     Indication: URINARY INCONTINENCE
     Route: 065
  6. ESTRATEST [Concomitant]
     Route: 065
     Dates: start: 19970101, end: 20020101

REACTIONS (22)
  - ABDOMINAL PAIN UPPER [None]
  - ASTHMA [None]
  - BACK PAIN [None]
  - CERUMEN IMPACTION [None]
  - CORONARY ARTERY DISEASE [None]
  - CORONARY ARTERY RESTENOSIS [None]
  - DEPRESSION [None]
  - DIABETES MELLITUS NON-INSULIN-DEPENDENT [None]
  - DIARRHOEA [None]
  - HYDRONEPHROSIS [None]
  - IRRITABLE BOWEL SYNDROME [None]
  - ISCHAEMIC CARDIOMYOPATHY [None]
  - MUSCULOSKELETAL PAIN [None]
  - MYOCARDIAL INFARCTION [None]
  - NECK PAIN [None]
  - NEPHROLITHIASIS [None]
  - OESOPHAGEAL SPASM [None]
  - PNEUMONIA [None]
  - RENAL EMBOLISM [None]
  - URINARY TRACT INFECTION [None]
  - WEIGHT INCREASED [None]
  - WRIST FRACTURE [None]
